FAERS Safety Report 12647767 (Version 1)
Quarter: 2016Q3

REPORT INFORMATION
  Report Type: Spontaneous
  Country: US (occurrence: None)
  Receive Date: 20160811
  Receipt Date: 20160811
  Transmission Date: 20161109
  Serious: No
  Sender: FDA-Public Use
  Company Number: None

PATIENT
  Age: 64 Year
  Sex: Female
  Weight: 96.62 kg

DRUGS (1)
  1. AMBIEN [Suspect]
     Active Substance: ZOLPIDEM TARTRATE
     Indication: INSOMNIA
     Dosage: 1 PILL/NIGHT ORAL
     Route: 048
     Dates: start: 2006, end: 2006

REACTIONS (4)
  - Abnormal sleep-related event [None]
  - Memory impairment [None]
  - Somnambulism [None]
  - Sleep sex [None]

NARRATIVE: CASE EVENT DATE: 2006
